FAERS Safety Report 8022869-4 (Version None)
Quarter: 2012Q1

REPORT INFORMATION
  Report Type: 
  Country: None (occurrence: None)
  Receive Date: 20120104
  Receipt Date: 20120103
  Transmission Date: 20120608
  Serious: Yes (Other)
  Sender: FDA-Public Use
  Company Number: IE-ROCHE-1013675

PATIENT
  Sex: Female
  Weight: 68 kg

DRUGS (1)
  1. HERCEPTIN [Suspect]
     Indication: BREAST CANCER METASTATIC
     Route: 042
     Dates: start: 20101215, end: 20110803

REACTIONS (2)
  - MYOPATHY [None]
  - MYOSITIS [None]
